FAERS Safety Report 10056515 (Version 1)
Quarter: 2014Q2

REPORT INFORMATION
  Report Type: Spontaneous
  Country: TW (occurrence: TW)
  Receive Date: 20140403
  Receipt Date: 20140403
  Transmission Date: 20141212
  Serious: Yes (Death, Hospitalization, Other)
  Sender: FDA-Public Use
  Company Number: TW-AMGEN INC.-TWNSP2014023245

PATIENT
  Age: 62 Year
  Sex: Female

DRUGS (5)
  1. ENBREL [Suspect]
     Indication: RHEUMATOID ARTHRITIS
     Dosage: 25 MG, EVERY 4 TO 5 DAYS
     Route: 058
     Dates: start: 200608
  2. PREDNISOLONE [Concomitant]
     Dosage: 5 MG, 2X/DAY
  3. HYDROXYCHLOROQUINE [Concomitant]
     Dosage: 400 MG, DAILY
  4. MTX                                /00113802/ [Concomitant]
     Dosage: 10 MG, WEEKLY
  5. SULFASALAZIN [Concomitant]
     Dosage: 1 MG, 2X/DAY

REACTIONS (3)
  - Ischaemic cardiomyopathy [Fatal]
  - Coronary artery disease [Fatal]
  - Myocardial infarction [Unknown]
